FAERS Safety Report 6182198-0 (Version None)
Quarter: 2009Q2

REPORT INFORMATION
  Report Type: 
  Country: None (occurrence: None)
  Receive Date: 20090507
  Receipt Date: 20090505
  Transmission Date: 20091009
  Serious: Yes (Death, Hospitalization, Other)
  Sender: FDA-Public Use
  Company Number: GB-WYE-G03625409

PATIENT
  Age: 62 Year
  Sex: Male
  Weight: 70 kg

DRUGS (3)
  1. TORISEL [Suspect]
     Indication: COLORECTAL CANCER METASTATIC
     Dosage: 25MG, FREQUENCY UNSPECIFIED
     Route: 042
     Dates: start: 20090313
  2. PREDNISOLONE [Concomitant]
     Dosage: UNKNOWN
  3. MEDROXYPROGESTERONE [Concomitant]
     Dosage: UNKNOWN
     Route: 048

REACTIONS (2)
  - BODY TEMPERATURE INCREASED [None]
  - PULMONARY EMBOLISM [None]
